FAERS Safety Report 4728540-6 (Version None)
Quarter: 2005Q3

REPORT INFORMATION
  Report Type: 
  Country: None (occurrence: None)
  Receive Date: 20050729
  Receipt Date: 20050720
  Transmission Date: 20060218
  Serious: Yes (Life-Threatening, Hospitalization, Other)
  Sender: FDA-Public Use
  Company Number: US-JNJFOC-20050705166

PATIENT
  Age: 13 Year
  Sex: Male

DRUGS (6)
  1. CONCERTA [Suspect]
     Route: 048
  2. CONCERTA [Suspect]
     Route: 048
  3. RISPERIDONE [Suspect]
     Route: 048
  4. RISPERIDONE [Suspect]
     Indication: AGGRESSION
     Route: 048
  5. GUANFACINE HCL [Concomitant]
     Indication: DRUG USE FOR UNKNOWN INDICATION
  6. FLUVOXAMINE [Concomitant]
     Indication: DRUG USE FOR UNKNOWN INDICATION

REACTIONS (2)
  - EXTRAPYRAMIDAL DISORDER [None]
  - SUICIDE ATTEMPT [None]
